FAERS Safety Report 9991190 (Version 1)
Quarter: 2014Q1

REPORT INFORMATION
  Report Type: Report from Study
  Country: US (occurrence: US)
  Receive Date: 20140310
  Receipt Date: 20140310
  Transmission Date: 20141002
  Serious: No
  Sender: FDA-Public Use
  Company Number: US-ABBVIE-13P-163-1133999-00

PATIENT
  Age: 59 Year
  Sex: Female

DRUGS (3)
  1. HUMIRA [Suspect]
     Indication: CROHN^S DISEASE
     Dates: start: 20130813, end: 20130813
  2. LIALDA [Concomitant]
     Indication: CROHN^S DISEASE
     Route: 048
  3. UCERIS [Concomitant]
     Indication: CROHN^S DISEASE
     Dosage: 9 MG DAILY
     Route: 048

REACTIONS (1)
  - Diarrhoea haemorrhagic [Not Recovered/Not Resolved]
